FAERS Safety Report 10616876 (Version 1)
Quarter: 2014Q4

REPORT INFORMATION
  Report Type: Spontaneous
  Country: FR (occurrence: FR)
  Receive Date: 20141201
  Receipt Date: 20141201
  Transmission Date: 20150529
  Serious: Yes (Hospitalization)
  Sender: FDA-Public Use
  Company Number: FR-NOVOPROD-430315

PATIENT
  Age: 36 Year
  Sex: Male

DRUGS (4)
  1. LANTUS [Suspect]
     Active Substance: INSULIN GLARGINE
     Dosage: 11 IU, QD
     Route: 058
  2. NOVORAPID [Suspect]
     Active Substance: INSULIN ASPART
     Dosage: 28 IU, QD (10 IU - 2 IU AND 16 IU)
     Route: 058
  3. LANTUS [Suspect]
     Active Substance: INSULIN GLARGINE
     Indication: PRODUCT USED FOR UNKNOWN INDICATION
     Dosage: 12 IU, QD
     Route: 058
  4. NOVORAPID [Suspect]
     Active Substance: INSULIN ASPART
     Indication: PRODUCT USED FOR UNKNOWN INDICATION
     Dosage: 72 IU, QD (24 IU THREE TIMES DAILY)
     Route: 058

REACTIONS (2)
  - Hypoglycaemia [Recovered/Resolved]
  - Gastroenteritis [Unknown]

NARRATIVE: CASE EVENT DATE: 20121215
